FAERS Safety Report 6801741-9 (Version None)
Quarter: 2010Q2

REPORT INFORMATION
  Report Type: 
  Country: None (occurrence: None)
  Receive Date: 20100629
  Receipt Date: 20100621
  Transmission Date: 20101027
  Serious: Yes (Other)
  Sender: FDA-Public Use
  Company Number: US-WYE-H15316910

PATIENT
  Sex: Female
  Weight: 68.1 kg

DRUGS (2)
  1. PRISTIQ [Suspect]
     Indication: ANXIETY
     Dates: start: 20090101, end: 20100512
  2. PRISTIQ [Suspect]
     Indication: DEPRESSION

REACTIONS (8)
  - BLINDNESS TRANSIENT [None]
  - DIZZINESS [None]
  - DRUG WITHDRAWAL SYNDROME [None]
  - DYSPNOEA [None]
  - MIGRAINE [None]
  - PARAESTHESIA [None]
  - SEXUAL DYSFUNCTION [None]
  - UNEVALUABLE EVENT [None]
